FAERS Safety Report 5397570-6 (Version None)
Quarter: 2007Q3

REPORT INFORMATION
  Report Type: 
  Country: None (occurrence: None)
  Receive Date: 20070726
  Receipt Date: 20070716
  Transmission Date: 20080115
  Serious: Yes (Life-Threatening)
  Sender: FDA-Public Use
  Company Number: FR-ROCHE-500328

PATIENT
  Age: 48 Year
  Sex: Female
  Weight: 71 kg

DRUGS (4)
  1. CELLCEPT [Suspect]
     Route: 048
     Dates: start: 20041117, end: 20051015
  2. SOLU-MEDROL [Suspect]
     Route: 042
  3. CYCLOPHOSPHAMIDE [Suspect]
     Dosage: 600 MG/CYCLE
     Route: 042
     Dates: start: 20040814, end: 20041117
  4. CORTANCYL [Suspect]
     Route: 048

REACTIONS (6)
  - APATHY [None]
  - DEMYELINATION [None]
  - ENCEPHALOPATHY [None]
  - MEMORY IMPAIRMENT [None]
  - PROGRESSIVE MULTIFOCAL LEUKOENCEPHALOPATHY [None]
  - SLEEP DISORDER [None]
